FAERS Safety Report 20406365 (Version 1)
Quarter: 2022Q1

REPORT INFORMATION
  Report Type: Spontaneous
  Country: US (occurrence: None)
  Receive Date: 20220131
  Receipt Date: 20220131
  Transmission Date: 20220423
  Serious: Yes (Hospitalization)
  Sender: FDA-Public Use
  Company Number: None

PATIENT
  Age: 56 Year
  Sex: Male
  Weight: 140.85 kg

DRUGS (2)
  1. EVUSHELD [Suspect]
     Active Substance: CILGAVIMAB\TIXAGEVIMAB
     Indication: Renal transplant
     Dosage: FREQUENCY : ONCE;?
     Route: 030
     Dates: start: 20220125, end: 20220125
  2. EVUSHELD [Suspect]
     Active Substance: CILGAVIMAB\TIXAGEVIMAB
     Indication: COVID-19 prophylaxis

REACTIONS (1)
  - Rash [None]

NARRATIVE: CASE EVENT DATE: 20220128
